FAERS Safety Report 6167385-X (Version None)
Quarter: 2009Q2

REPORT INFORMATION
  Report Type: 
  Country: None (occurrence: None)
  Receive Date: 20090424
  Receipt Date: 20090421
  Transmission Date: 20091009
  Serious: Yes (Hospitalization, Other)
  Sender: FDA-Public Use
  Company Number: DE-ABBOTT-09P-062-0565581-00

PATIENT
  Sex: Female
  Weight: 52 kg

DRUGS (2)
  1. HUMIRA [Suspect]
     Indication: CROHN'S DISEASE
     Route: 058
     Dates: start: 20081212
  2. HUMIRA [Suspect]
     Dates: start: 20090401

REACTIONS (5)
  - GASTROINTESTINAL INFLAMMATION [None]
  - INJECTION SITE REACTION [None]
  - INTESTINAL PERFORATION [None]
  - PROCEDURAL SITE REACTION [None]
  - PSORIASIS [None]
